FAERS Safety Report 7827098-2 (Version None)
Quarter: 2011Q4

REPORT INFORMATION
  Report Type: 
  Country: None (occurrence: None)
  Receive Date: 20111019
  Receipt Date: 20111019
  Transmission Date: 20120403
  Serious: Yes (Hospitalization, Disabling)
  Sender: FDA-Public Use
  Company Number: None

PATIENT
  Age: 5 Month
  Sex: Female
  Weight: 8.1647 kg

DRUGS (1)
  1. LEVETIRACETAM [Suspect]
     Indication: PETIT MAL EPILEPSY
     Dosage: .5 ML TWICE DAY; 1 ML TWICE A DAY
     Dates: start: 20110323, end: 20110407

REACTIONS (2)
  - CEREBROVASCULAR ACCIDENT [None]
  - CONVULSION [None]
